FAERS Safety Report 8914587 (Version 1)
Quarter: 2012Q4

REPORT INFORMATION
  Report Type: 
  Country: JP (occurrence: JP)
  Receive Date: 20121119
  Receipt Date: 20121119
  Transmission Date: 20130627
  Serious: Yes (Hospitalization)
  Sender: FDA-Public Use
  Company Number: JP-NOVOPROD-363894

PATIENT
  Age: 65 Year
  Sex: Male

DRUGS (2)
  1. NOVORAPID 30 MIX [Suspect]
     Indication: TYPE 2 DIABETES MELLITUS
     Route: 058
  2. METFORMIN [Concomitant]
     Dosage: 750 mg, qd

REACTIONS (3)
  - Anti-insulin antibody positive [Unknown]
  - Diabetes mellitus inadequate control [Recovered/Resolved]
  - Hypoglycaemia [Recovered/Resolved]
